FAERS Safety Report 21788078 (Version 1)
Quarter: 2022Q4

REPORT INFORMATION
  Report Type: Report from Study
  Country: US (occurrence: US)
  Receive Date: 20221228
  Receipt Date: 20221228
  Transmission Date: 20230113
  Serious: No
  Sender: FDA-Public Use
  Company Number: US-ABBVIE-4213199

PATIENT
  Age: 28 Year
  Sex: Female

DRUGS (2)
  1. HUMIRA [Suspect]
     Active Substance: ADALIMUMAB
     Indication: Hidradenitis
     Dosage: DAY 1?STRENGTH: 80 MG
     Route: 058
     Dates: start: 20211018, end: 20211018
  2. HUMIRA [Suspect]
     Active Substance: ADALIMUMAB
     Dosage: DAY 15?STRENGTH: 80 MG
     Route: 058
     Dates: start: 20211103, end: 20211103

REACTIONS (4)
  - Cyst [Unknown]
  - Pain [Unknown]
  - Unevaluable event [Unknown]
  - Pruritus [Unknown]

NARRATIVE: CASE EVENT DATE: 20221001
